FAERS Safety Report 8574816-4 (Version None)
Quarter: 2012Q3

REPORT INFORMATION
  Report Type: 
  Country: None (occurrence: None)
  Receive Date: 20120807
  Receipt Date: 20120727
  Transmission Date: 20120928
  Serious: Yes (Hospitalization)
  Sender: FDA-Public Use
  Company Number: JP-VERTEX PHARMACEUTICALS INC.-AE-2012-011313

PATIENT
  Age: 65 Year
  Sex: Male

DRUGS (13)
  1. REBETOL [Concomitant]
     Indication: HEPATITIS C
     Route: 048
     Dates: start: 20120207, end: 20120226
  2. REBETOL [Concomitant]
     Route: 048
     Dates: start: 20120328, end: 20120508
  3. FAMOTIDINE [Concomitant]
     Route: 048
     Dates: start: 20120207
  4. LOXONIN [Concomitant]
     Route: 048
     Dates: start: 20120207
  5. LOXONIN [Concomitant]
     Route: 048
     Dates: end: 20120724
  6. TELAVIC (TELAPREVIR) [Suspect]
     Indication: HEPATITIS C
     Route: 048
     Dates: start: 20120207, end: 20120502
  7. REBETOL [Concomitant]
     Route: 048
     Dates: start: 20120523, end: 20120724
  8. CELESTAMINE TAB [Concomitant]
     Route: 048
     Dates: start: 20120207
  9. CELESTAMINE TAB [Concomitant]
     Route: 048
     Dates: start: 20120501
  10. PEG-INTRON [Concomitant]
     Indication: HEPATITIS C
     Route: 058
     Dates: start: 20120207, end: 20120508
  11. PEG-INTRON [Concomitant]
     Route: 058
     Dates: start: 20120523, end: 20120718
  12. ALLOPURINOL [Concomitant]
     Route: 048
     Dates: end: 20120508
  13. REBETOL [Concomitant]
     Route: 048
     Dates: start: 20120227, end: 20120327

REACTIONS (1)
  - PYREXIA [None]
